FAERS Safety Report 5126001-6 (Version None)
Quarter: 2006Q4

REPORT INFORMATION
  Report Type: 
  Country: None (occurrence: None)
  Receive Date: 20061010
  Receipt Date: 20061010
  Transmission Date: 20070319
  Serious: Yes (Hospitalization)
  Sender: FDA-Public Use
  Company Number: None

PATIENT
  Age: 56 Year
  Sex: Male

DRUGS (2)
  1. CETUXIMAB 250MG/M2 [Suspect]
     Indication: NON-SMALL CELL LUNG CANCER
     Dosage: 250MG/M2 IV
     Route: 042
     Dates: start: 20061002
  2. VINFLUNINE 320MG/M2 Q3WK [Suspect]
     Indication: NON-SMALL CELL LUNG CANCER
     Dosage: 350MG/M2 IV
     Route: 042
     Dates: start: 20060925

REACTIONS (9)
  - ANAEMIA [None]
  - CHEST PAIN [None]
  - DRUG INEFFECTIVE [None]
  - HYPOAESTHESIA [None]
  - OEDEMA PERIPHERAL [None]
  - PAIN IN EXTREMITY [None]
  - PNEUMONIA [None]
  - PYREXIA [None]
  - THROMBOSIS [None]
